FAERS Safety Report 10157787 (Version 1)
Quarter: 2014Q2

REPORT INFORMATION
  Report Type: Report from Study
  Country: US (occurrence: US)
  Receive Date: 20140507
  Receipt Date: 20140507
  Transmission Date: 20141212
  Serious: No
  Sender: FDA-Public Use
  Company Number: PHEH2014US008623

PATIENT
  Age: 66 Year
  Sex: Male
  Weight: 86.17 kg

DRUGS (11)
  1. TASIGNA [Suspect]
     Indication: CHRONIC MYELOID LEUKAEMIA
     Dosage: 300 MG, BID
     Route: 048
     Dates: start: 201403
  2. ADVIL//IBUPROFEN [Concomitant]
     Dosage: UNK UKN, UNK
  3. ALLOPURINOL [Concomitant]
     Dosage: UNK UKN, UNK
  4. JANUMET [Concomitant]
     Dosage: UNK UKN, UNK
  5. MULTIVIT//VITAMINS NOS [Concomitant]
     Dosage: UNK UKN, UNK
  6. PLAVIX [Concomitant]
     Dosage: UNK UKN, UNK
  7. RANITIDINE HCL [Concomitant]
     Dosage: UNK UKN, UNK
  8. SIMCOR                             /03020801/ [Concomitant]
     Dosage: UNK UKN, UNK
  9. TOPROL XL [Concomitant]
     Dosage: UNK UKN, UNK
  10. TOVIAZ [Concomitant]
     Dosage: UNK UKN, UNK
  11. ZOFRAN [Concomitant]
     Dosage: UNK UKN, UNK

REACTIONS (3)
  - Constipation [Unknown]
  - Fatigue [Unknown]
  - Nausea [Unknown]
